FAERS Safety Report 9194211 (Version 1)
Quarter: 2013Q1

REPORT INFORMATION
  Report Type: Other
  Country: DE (occurrence: DE)
  Receive Date: 20130327
  Receipt Date: 20130327
  Transmission Date: 20140127
  Serious: Yes (Death)
  Sender: FDA-Public Use
  Company Number: DE-WATSON-2013-05270

PATIENT
  Age: 57 Year
  Sex: Female

DRUGS (5)
  1. GEMCITABINE [Suspect]
     Indication: PANCREATIC CARCINOMA
     Dosage: 1000 MG/M2, UNKNOWN
     Route: 041
     Dates: start: 20120906, end: 201302
  2. KREON                              /00014701/ [Concomitant]
     Indication: PRODUCT USED FOR UNKNOWN INDICATION
     Dosage: 30000 IU, TID
     Route: 065
  3. BISOPROLOL [Concomitant]
     Indication: PRODUCT USED FOR UNKNOWN INDICATION
     Dosage: 2.5 MG, BID
     Route: 065
  4. TAZOBAC [Concomitant]
     Indication: PRODUCT USED FOR UNKNOWN INDICATION
     Dosage: 4.5 MG, TID
     Route: 065
     Dates: start: 20130221, end: 20130224
  5. ROCEPHIN BIOCHEMIE [Concomitant]
     Indication: PRODUCT USED FOR UNKNOWN INDICATION
     Dosage: 2 G, DAILY
     Route: 065
     Dates: start: 20130219, end: 20130221

REACTIONS (6)
  - Cardiac failure acute [Fatal]
  - Cardiac arrest [Fatal]
  - Microangiopathic haemolytic anaemia [Fatal]
  - Renal failure acute [Fatal]
  - Thrombocytopenia [Fatal]
  - Haemolysis [Fatal]
